FAERS Safety Report 7686043-3 (Version None)
Quarter: 2011Q3

REPORT INFORMATION
  Report Type: 
  Country: None (occurrence: None)
  Receive Date: 20110816
  Receipt Date: 20110805
  Transmission Date: 20111222
  Serious: Yes (Other)
  Sender: FDA-Public Use
  Company Number: PHHY2011US49482

PATIENT
  Age: 78 Year
  Sex: Female

DRUGS (9)
  1. CALCIUM CITRATE [Concomitant]
     Dosage: UNK
  2. BENAZEPRIL HYDROCHLORIDE [Concomitant]
     Dosage: UNK
  3. RECLAST [Suspect]
     Dosage: 5 MG, UNK
     Route: 042
     Dates: start: 20110413
  4. MELOXICAM [Concomitant]
     Dosage: UNK
  5. AMITRIPTYLINE HCL [Concomitant]
     Dosage: UNK
  6. CITRACAL [Concomitant]
     Dosage: UNK
  7. FLUVASTATIN [Concomitant]
     Dosage: UNK
  8. LASIX [Concomitant]
     Dosage: UNK
  9. VITAMIN D [Concomitant]
     Dosage: UNK

REACTIONS (7)
  - SPINAL FRACTURE [None]
  - PAIN IN EXTREMITY [None]
  - FUNGAL INFECTION [None]
  - OEDEMA PERIPHERAL [None]
  - RAYNAUD'S PHENOMENON [None]
  - PELVIC FRACTURE [None]
  - COUGH [None]
